FAERS Safety Report 9096033 (Version 4)
Quarter: 2014Q3

REPORT INFORMATION
  Report Type: Spontaneous
  Country: US (occurrence: US)
  Receive Date: 20130207
  Receipt Date: 20140815
  Transmission Date: 20150326
  Serious: Yes (Hospitalization, Other)
  Sender: FDA-Public Use
  Company Number: US-009507513-1301USA013378

PATIENT
  Sex: Female
  Weight: 95.69 kg

DRUGS (4)
  1. NUVARING [Suspect]
     Active Substance: ETHINYL ESTRADIOL\ETONOGESTREL
     Indication: CONTRACEPTION
     Dosage: UNK
     Route: 067
     Dates: start: 20041217, end: 200502
  2. NUVARING [Suspect]
     Active Substance: ETHINYL ESTRADIOL\ETONOGESTREL
     Dosage: UNK
     Route: 067
     Dates: start: 20060409, end: 200608
  3. NUVARING [Suspect]
     Active Substance: ETHINYL ESTRADIOL\ETONOGESTREL
     Dosage: UNK
     Route: 067
     Dates: start: 20070114, end: 200702
  4. NUVARING [Suspect]
     Active Substance: ETHINYL ESTRADIOL\ETONOGESTREL
     Dosage: UNK
     Route: 067
     Dates: start: 20100312, end: 20100814

REACTIONS (21)
  - Colonoscopy [Unknown]
  - White blood cell count increased [Unknown]
  - Abortion spontaneous [Recovered/Resolved]
  - Arthralgia [Unknown]
  - Electrocardiogram abnormal [Unknown]
  - Maternal exposure before pregnancy [Unknown]
  - Pulmonary embolism [Not Recovered/Not Resolved]
  - Back pain [Unknown]
  - Substance abuse [Unknown]
  - Suicide attempt [Unknown]
  - Anal fissure [Unknown]
  - Cardiac arrest [Unknown]
  - Cholecystectomy [Unknown]
  - Musculoskeletal pain [Unknown]
  - Leukocytosis [Recovered/Resolved]
  - Irritable bowel syndrome [Unknown]
  - Pulmonary infarction [Not Recovered/Not Resolved]
  - Breast abscess [Unknown]
  - Panic disorder [Unknown]
  - Uvulopalatopharyngoplasty [Unknown]
  - Smear cervix abnormal [Unknown]

NARRATIVE: CASE EVENT DATE: 2008
